FAERS Safety Report 8046603-7 (Version None)
Quarter: 2012Q1

REPORT INFORMATION
  Report Type: 
  Country: None (occurrence: None)
  Receive Date: 20120114
  Receipt Date: 20120102
  Transmission Date: 20120608
  Serious: Yes (Other)
  Sender: FDA-Public Use
  Company Number: TW-AMGEN-TWNSP2012001625

PATIENT
  Age: 42 Year
  Sex: Female

DRUGS (5)
  1. SULFASALAZINE [Concomitant]
     Dosage: 1000 MG, UNK
  2. LEFLUNOMIDE [Concomitant]
     Dosage: 10 MG, UNK
  3. ETANERCEPT [Suspect]
     Indication: RHEUMATOID ARTHRITIS
     Dosage: UNK
     Dates: start: 20090601
  4. ENTECAVIR [Concomitant]
     Dosage: 0.5 MG, PER DAY REGULARLY
  5. HYDROXYCHLOROQUINE SULFATE [Concomitant]
     Dosage: 400 MG, UNK

REACTIONS (1)
  - INTERSTITIAL GRANULOMATOUS DERMATITIS [None]
